FAERS Safety Report 9362938 (Version 2)
Quarter: 2014Q2

REPORT INFORMATION
  Report Type: Report from Study
  Country: JP (occurrence: JP)
  Receive Date: 20130624
  Receipt Date: 20140613
  Transmission Date: 20141212
  Serious: Yes (Death)
  Sender: FDA-Public Use
  Company Number: JP-ROCHE-1239762

PATIENT
  Age: 83 Year
  Sex: Male
  Weight: 59 kg

DRUGS (2)
  1. METHOXY POLYETHYLENE GLYCOL-EPOETIN BETA [Suspect]
     Indication: NEPHROGENIC ANAEMIA
     Route: 058
     Dates: start: 20120424, end: 20120806
  2. NU-LOTAN [Concomitant]
     Indication: GLOMERULONEPHRITIS CHRONIC
     Route: 048
     Dates: end: 20120816

REACTIONS (1)
  - Aortic rupture [Fatal]
